FAERS Safety Report 16756532 (Version 1)
Quarter: 2019Q3

REPORT INFORMATION
  Report Type: Spontaneous
  Country: FR (occurrence: FR)
  Receive Date: 20190829
  Receipt Date: 20190829
  Transmission Date: 20191005
  Serious: Yes (Other)
  Sender: FDA-Public Use
  Company Number: FR-JNJFOC-20190832244

PATIENT
  Age: 71 Year
  Sex: Male
  Weight: 95 kg

DRUGS (1)
  1. HALDOL DECANOAS [Suspect]
     Active Substance: HALOPERIDOL DECANOATE
     Indication: BIPOLAR I DISORDER
     Route: 030
     Dates: start: 199505

REACTIONS (6)
  - Tremor [Not Recovered/Not Resolved]
  - Bradycardia [Recovered/Resolved with Sequelae]
  - Nightmare [Not Recovered/Not Resolved]
  - Diplopia [Not Recovered/Not Resolved]
  - Hyperhidrosis [Not Recovered/Not Resolved]
  - Dry mouth [Not Recovered/Not Resolved]
